FAERS Safety Report 8872592 (Version 2)
Quarter: 2012Q4

REPORT INFORMATION
  Report Type: 
  Country: US (occurrence: None)
  Receive Date: 20121031
  Receipt Date: 20121109
  Transmission Date: 20130627
  Serious: Yes (Hospitalization)
  Sender: FDA-Public Use
  Company Number: None

PATIENT
  Age: 62 Year
  Sex: Female
  Weight: 90.72 kg

DRUGS (2)
  1. TORADOL [Suspect]
  2. KETOROLAC [Suspect]

REACTIONS (4)
  - Joint swelling [None]
  - Erythema [None]
  - Incision site complication [None]
  - Feeling hot [None]
